FAERS Safety Report 19415915 (Version 2)
Quarter: 2021Q2

REPORT INFORMATION
  Report Type: Spontaneous
  Country: PL (occurrence: PL)
  Receive Date: 20210615
  Receipt Date: 20210621
  Transmission Date: 20210717
  Serious: Yes (Other)
  Sender: FDA-Public Use
  Company Number: PL-TEVA-2021-PL-1921910

PATIENT
  Age: 69 Year
  Sex: Male
  Weight: 104 kg

DRUGS (4)
  1. FLUOROURACIL. [Suspect]
     Active Substance: FLUOROURACIL
     Indication: PANCREATIC CARCINOMA
     Dosage: DOSE: 900 MG ? BOLUS, 2700 MG ? DRIP
     Route: 042
     Dates: start: 20180808, end: 20181002
  2. IRINOTECAN [Suspect]
     Active Substance: IRINOTECAN
     Indication: PANCREATIC CARCINOMA
     Dosage: 405MILLIGRAM
     Route: 042
     Dates: start: 20180808, end: 20181002
  3. CALCII FOLINAS [Suspect]
     Active Substance: LEUCOVORIN
     Indication: PANCREATIC CARCINOMA
     Dosage: 450MILLIGRAM
     Route: 042
     Dates: start: 20180808, end: 20181002
  4. OXALIPLATIN. [Suspect]
     Active Substance: OXALIPLATIN
     Indication: PANCREATIC CARCINOMA
     Dosage: 191.25MILLIGRAM
     Route: 042
     Dates: start: 20180808, end: 20181002

REACTIONS (1)
  - Neutropenia [Unknown]

NARRATIVE: CASE EVENT DATE: 20181024
